FAERS Safety Report 18609999 (Version 2)
Quarter: 2021Q1

REPORT INFORMATION
  Report Type: Spontaneous
  Country: US (occurrence: US)
  Receive Date: 20201214
  Receipt Date: 20210206
  Transmission Date: 20210419
  Serious: Yes (Hospitalization, Other)
  Sender: FDA-Public Use
  Company Number: US-DRREDDYS-USA/USA/20/0130024

PATIENT
  Age: 88 Year
  Sex: Male

DRUGS (17)
  1. QUETIAPINE FUMARATE TABLETS [Suspect]
     Active Substance: QUETIAPINE FUMARATE
     Indication: BIPOLAR DISORDER
  2. OLANZAPINE TABLETS 2.5 MG, 5 MG, 7.5 MG, 10 MG [Suspect]
     Active Substance: OLANZAPINE
     Indication: BIPOLAR DISORDER
  3. QUETIAPINE FUMARATE TABLETS [Suspect]
     Active Substance: QUETIAPINE FUMARATE
     Indication: MOOD ALTERED
  4. CLONAZEPAM. [Concomitant]
     Active Substance: CLONAZEPAM
     Indication: VASCULAR DEMENTIA
  5. DIVALPROEX SODIUM. [Suspect]
     Active Substance: DIVALPROEX SODIUM
     Indication: BIPOLAR DISORDER
  6. OLANZAPINE TABLETS 2.5 MG, 5 MG, 7.5 MG, 10 MG [Suspect]
     Active Substance: OLANZAPINE
     Indication: VASCULAR DEMENTIA
  7. QUETIAPINE FUMARATE TABLETS [Suspect]
     Active Substance: QUETIAPINE FUMARATE
     Indication: VASCULAR DEMENTIA
  8. THIAMINE HYDROCHLORIDE. [Concomitant]
     Active Substance: THIAMINE HYDROCHLORIDE
     Indication: BIPOLAR DISORDER
  9. RISPERIDONE. [Concomitant]
     Active Substance: RISPERIDONE
     Indication: PRODUCT USED FOR UNKNOWN INDICATION
  10. CARBAMAZEPINE. [Concomitant]
     Active Substance: CARBAMAZEPINE
     Indication: BIPOLAR DISORDER
  11. GABAPENTIN. [Concomitant]
     Active Substance: GABAPENTIN
     Indication: BIPOLAR DISORDER
  12. CLONAZEPAM. [Concomitant]
     Active Substance: CLONAZEPAM
     Indication: BIPOLAR DISORDER
  13. FOLIC ACID. [Concomitant]
     Active Substance: FOLIC ACID
     Indication: VASCULAR DEMENTIA
  14. FOLIC ACID. [Concomitant]
     Active Substance: FOLIC ACID
     Indication: BIPOLAR DISORDER
  15. CARBAMAZEPINE. [Concomitant]
     Active Substance: CARBAMAZEPINE
     Indication: VASCULAR DEMENTIA
  16. GABAPENTIN. [Concomitant]
     Active Substance: GABAPENTIN
     Indication: VASCULAR DEMENTIA
  17. THIAMINE HYDROCHLORIDE. [Concomitant]
     Active Substance: THIAMINE HYDROCHLORIDE
     Indication: VASCULAR DEMENTIA

REACTIONS (2)
  - Constipation [Unknown]
  - Drug ineffective [Unknown]
